FAERS Safety Report 4666514-4 (Version None)
Quarter: 2005Q2

REPORT INFORMATION
  Report Type: 
  Country: None (occurrence: None)
  Receive Date: 20050518
  Receipt Date: 20050509
  Transmission Date: 20051028
  Serious: Yes (Other)
  Sender: FDA-Public Use
  Company Number: 2005BI006853

PATIENT
  Age: 44 Year
  Sex: Male
  Weight: 139.3 kg

DRUGS (7)
  1. NATALIZUMAB (NATALIZUMAB) [Suspect]
     Indication: MULTIPLE SCLEROSIS
     Dosage: 300 MG; QM; IV
     Route: 042
     Dates: start: 20041027
  2. WELLBUTRIN [Concomitant]
  3. SERTRALINE HYDROCHLORIDE [Concomitant]
  4. ... [Concomitant]
  5. ALERTEC [Concomitant]
  6. AVANDAMET [Concomitant]
  7. LIPIDIL [Concomitant]

REACTIONS (4)
  - CEREBRAL HAEMORRHAGE [None]
  - CEREBRAL INFARCTION [None]
  - HAEMORRHAGIC INFARCTION [None]
  - HYPOGAMMAGLOBULINAEMIA [None]
